FAERS Safety Report 5480280-4 (Version None)
Quarter: 2007Q4

REPORT INFORMATION
  Report Type: 
  Country: None (occurrence: None)
  Receive Date: 20071009
  Receipt Date: 20071002
  Transmission Date: 20080405
  Serious: Yes (Hospitalization)
  Sender: FDA-Public Use
  Company Number: AU-ASTRAZENECA-2007AP05510

PATIENT
  Age: 30879 Day
  Sex: Male
  Weight: 50 kg

DRUGS (3)
  1. NEXIUM [Suspect]
     Indication: DYSPEPSIA
     Route: 048
     Dates: start: 20070701
  2. GLUCOSAMINE [Concomitant]
     Indication: ARTHRITIS
     Dosage: LONG TERM USER
     Route: 048
  3. ASPIRIN [Concomitant]
     Indication: PROPHYLAXIS
     Dosage: LONG TERM USER
     Route: 048

REACTIONS (2)
  - CHOLESTASIS [None]
  - LIVER DISORDER [None]
